FAERS Safety Report 12784495 (Version 1)
Quarter: 2016Q3

REPORT INFORMATION
  Report Type: Spontaneous
  Country: US (occurrence: US)
  Receive Date: 20160927
  Receipt Date: 20160927
  Transmission Date: 20161109
  Serious: No
  Sender: FDA-Public Use
  Company Number: US-009507513-1609USA012119

PATIENT
  Age: 17 Year
  Sex: Female

DRUGS (1)
  1. NEXPLANON [Suspect]
     Active Substance: ETONOGESTREL
     Indication: CONTRACEPTION
     Dosage: UNK
     Route: 059
     Dates: start: 20150415

REACTIONS (5)
  - Device breakage [Recovered/Resolved]
  - Medical device discomfort [Recovered/Resolved]
  - Intentional product misuse [Recovered/Resolved]
  - Implant site scar [Unknown]
  - Product quality issue [Unknown]

NARRATIVE: CASE EVENT DATE: 201609
